FAERS Safety Report 4712623-0 (Version None)
Quarter: 2005Q3

REPORT INFORMATION
  Report Type: 
  Country: None (occurrence: None)
  Receive Date: 20050711
  Receipt Date: 20050630
  Transmission Date: 20060218
  Serious: Yes (Other)
  Sender: FDA-Public Use
  Company Number: 2005094843

PATIENT
  Sex: Female
  Weight: 68.0396 kg

DRUGS (3)
  1. CALAN [Suspect]
     Indication: HYPERTENSION
     Dosage: 250 MG (250 MG, DAILY), ORAL
     Route: 048
     Dates: start: 19900101, end: 20040201
  2. ZESTRIL [Concomitant]
  3. PREMPRO ESTROGENS CONJUGATED, MEDROXPROGESTERONE ACETATE) [Concomitant]

REACTIONS (6)
  - ECHOCARDIOGRAM ABNORMAL [None]
  - JOINT SWELLING [None]
  - OEDEMA PERIPHERAL [None]
  - PULMONARY HYPERTENSION [None]
  - REFUSAL OF TREATMENT BY PATIENT [None]
  - SLEEP APNOEA SYNDROME [None]
